FAERS Safety Report 7932850-9 (Version None)
Quarter: 2011Q4

REPORT INFORMATION
  Report Type: 
  Country: None (occurrence: None)
  Receive Date: 20111122
  Receipt Date: 20111114
  Transmission Date: 20120403
  Serious: Yes (Other)
  Sender: FDA-Public Use
  Company Number: US-UCBSA-045793

PATIENT

DRUGS (1)
  1. CIMZIA [Suspect]
     Route: 058

REACTIONS (1)
  - LIVER FUNCTION TEST ABNORMAL [None]
